FAERS Safety Report 8449578-1 (Version None)
Quarter: 2012Q2

REPORT INFORMATION
  Report Type: 
  Country: None (occurrence: None)
  Receive Date: 20120620
  Receipt Date: 20120612
  Transmission Date: 20120825
  Serious: Yes (Hospitalization)
  Sender: FDA-Public Use
  Company Number: FR-BIOGENIDEC-2012BI001718

PATIENT
  Age: 44 Year
  Sex: Female
  Weight: 110 kg

DRUGS (4)
  1. CYMBALTA [Concomitant]
  2. TYSABRI [Suspect]
     Indication: MULTIPLE SCLEROSIS
     Route: 042
     Dates: start: 20090330, end: 20111205
  3. DESOGESTREL AND ETHINYL ESTRADIOL [Concomitant]
     Indication: CONTRACEPTION
  4. TYSABRI [Suspect]
     Route: 042
     Dates: start: 20120222

REACTIONS (1)
  - THROMBOPHLEBITIS SEPTIC [None]
